FAERS Safety Report 11701853 (Version 1)
Quarter: 2015Q4

REPORT INFORMATION
  Report Type: Spontaneous
  Country: US (occurrence: US)
  Receive Date: 20151105
  Receipt Date: 20151105
  Transmission Date: 20160304
  Serious: No
  Sender: FDA-Public Use
  Company Number: US-MALLINCKRODT-T201505015

PATIENT
  Sex: Female

DRUGS (1)
  1. FENTANYL TRANSDERMAL SYSTEM [Suspect]
     Active Substance: FENTANYL
     Indication: PRODUCT USED FOR UNKNOWN INDICATION
     Route: 065

REACTIONS (17)
  - Vomiting [Unknown]
  - Feeling cold [Unknown]
  - Diarrhoea [Unknown]
  - Nausea [Unknown]
  - Insomnia [Unknown]
  - Headache [Unknown]
  - Drug effect increased [Unknown]
  - Dizziness [Unknown]
  - Constipation [Unknown]
  - Hyperhidrosis [Unknown]
  - Product packaging quantity issue [Unknown]
  - Somnolence [Unknown]
  - Product adhesion issue [Unknown]
  - Dyspepsia [Unknown]
  - Palpitations [Unknown]
  - Fatigue [Unknown]
  - Decreased appetite [Unknown]
